FAERS Safety Report 7215627-1 (Version None)
Quarter: 2011Q1

REPORT INFORMATION
  Report Type: 
  Country: None (occurrence: None)
  Receive Date: 20110107
  Receipt Date: 20101230
  Transmission Date: 20110831
  Serious: Yes (Hospitalization)
  Sender: FDA-Public Use
  Company Number: NL-ACTELION-A-CH2010-43223

PATIENT
  Sex: Male

DRUGS (2)
  1. ZAVESCA [Suspect]
     Dosage: UNK
     Route: 048
     Dates: start: 20101112
  2. ZAVESCA [Suspect]
     Indication: NIEMANN-PICK DISEASE
     Dosage: UNK
     Route: 048
     Dates: start: 20100101

REACTIONS (1)
  - PNEUMONIA [None]
